FAERS Safety Report 7436747-2 (Version None)
Quarter: 2011Q2

REPORT INFORMATION
  Report Type: 
  Country: None (occurrence: None)
  Receive Date: 20110426
  Receipt Date: 20110419
  Transmission Date: 20111010
  Serious: Yes (Death, Other)
  Sender: FDA-Public Use
  Company Number: CA-ELI_LILLY_AND_COMPANY-CA201104005769

PATIENT
  Sex: Female

DRUGS (4)
  1. ZYPREXA [Suspect]
     Dosage: 2.5 MG, EACH EVENING
  2. RISPERDAL [Concomitant]
  3. ZYPREXA [Suspect]
     Dosage: 10 MG, EACH EVENING
  4. ZYPREXA [Suspect]
     Dosage: 5 MG, EACH EVENING

REACTIONS (11)
  - DEATH [None]
  - TRANSIENT ISCHAEMIC ATTACK [None]
  - TOOTH ABSCESS [None]
  - SKELETAL INJURY [None]
  - FALL [None]
  - LOSS OF CONSCIOUSNESS [None]
  - DYSLIPIDAEMIA [None]
  - VISUAL IMPAIRMENT [None]
  - WEIGHT INCREASED [None]
  - ARTERIOVENOUS MALFORMATION [None]
  - DIABETES MELLITUS [None]
